FAERS Safety Report 5106013-9 (Version None)
Quarter: 2006Q3

REPORT INFORMATION
  Report Type: 
  Country: None (occurrence: None)
  Receive Date: 20060915
  Receipt Date: 20060901
  Transmission Date: 20061208
  Serious: Yes (Life-Threatening, Hospitalization)
  Sender: FDA-Public Use
  Company Number: JP-ABBOTT-06P-087-0342808-00

PATIENT
  Age: 52 Year
  Sex: Male
  Weight: 61.2 kg

DRUGS (12)
  1. EURODIN [Suspect]
     Indication: INSOMNIA
     Route: 048
  2. PROMETHAZINE HCL [Suspect]
     Indication: DRUG USE FOR UNKNOWN INDICATION
     Route: 065
  3. ZOTEPINE [Suspect]
     Indication: DRUG USE FOR UNKNOWN INDICATION
     Route: 048
  4. CHLORPROMAZINE [Suspect]
     Indication: DRUG USE FOR UNKNOWN INDICATION
     Route: 065
  5. PHENOBARBITAL [Suspect]
     Indication: DRUG USE FOR UNKNOWN INDICATION
     Route: 065
  6. PEROSPIRONE HYDROCHLORIDE [Suspect]
     Indication: DRUG USE FOR UNKNOWN INDICATION
     Route: 048
  7. ETHYL LOFLAZEPATE [Suspect]
     Indication: DRUG USE FOR UNKNOWN INDICATION
     Route: 048
  8. ZOPICLONE [Suspect]
     Indication: INSOMNIA
     Route: 048
  9. HALOPERIDOL [Suspect]
     Indication: DRUG USE FOR UNKNOWN INDICATION
     Route: 065
  10. PLUNITRAZEPAM [Suspect]
     Indication: INSOMNIA
     Route: 065
  11. TRAZODONE HCL [Suspect]
     Indication: DRUG USE FOR UNKNOWN INDICATION
     Route: 048
  12. MYSLEE [Suspect]
     Indication: INSOMNIA
     Route: 048

REACTIONS (8)
  - ANAEMIA [None]
  - BLOOD CHOLESTEROL DECREASED [None]
  - CARDIOMEGALY [None]
  - CONDITION AGGRAVATED [None]
  - PULMONARY EMBOLISM [None]
  - PULMONARY HYPERTENSION [None]
  - RIGHT VENTRICULAR FAILURE [None]
  - TRICUSPID VALVE INCOMPETENCE [None]
